FAERS Safety Report 25606266 (Version 1)
Quarter: 2025Q3

REPORT INFORMATION
  Report Type: Report from Study
  Country: EG (occurrence: EG)
  Receive Date: 20250725
  Receipt Date: 20250725
  Transmission Date: 20251021
  Serious: Yes (Death, Hospitalization, Other)
  Sender: TAIHO ONCOLOGY INC
  Company Number: EG-SERVIER-S25002558

PATIENT
  Age: 40 Year
  Sex: Male
  Weight: 71 kg

DRUGS (1)
  1. LONSURF [Suspect]
     Active Substance: TIPIRACIL HYDROCHLORIDE\TRIFLURIDINE
     Indication: Colorectal cancer metastatic
     Dosage: 120 MG, DAILY, ON DAYS 1-5 AND 8-12 OF EACH 28-DAY CYCLE
     Route: 048
     Dates: start: 202501, end: 202502

REACTIONS (6)
  - Cardiomyopathy [Fatal]
  - Hypotension [Fatal]
  - Renal function test abnormal [Unknown]
  - Vesicoureteric reflux [Recovered/Resolved]
  - Urinary tract infection [Unknown]
  - Fistula [Unknown]

NARRATIVE: CASE EVENT DATE: 20250201
